FAERS Safety Report 7321356-6 (Version None)
Quarter: 2011Q1

REPORT INFORMATION
  Report Type: 
  Country: None (occurrence: None)
  Receive Date: 20110228
  Receipt Date: 20100405
  Transmission Date: 20110831
  Serious: No
  Sender: FDA-Public Use
  Company Number: US-PFIZER INC-2010042881

PATIENT

DRUGS (5)
  1. CLONAZEPAM [Suspect]
     Dosage: 0.5 MG, UNK
  2. GEODON [Suspect]
     Indication: DEPRESSION
     Dosage: 20 MG, UNK
  3. MIRTAZAPINE [Suspect]
     Dosage: 15 MG, UNK
  4. LEXAPRO [Suspect]
     Dosage: 20 MG, UNK
  5. BUPROPION HCL [Suspect]
     Dosage: 300 MG, UNK

REACTIONS (1)
  - HEADACHE [None]
